FAERS Safety Report 9636523 (Version 1)
Quarter: 2013Q4

REPORT INFORMATION
  Report Type: Spontaneous
  Country: US (occurrence: US)
  Receive Date: 20131021
  Receipt Date: 20131021
  Transmission Date: 20140711
  Serious: Yes (Other)
  Sender: FDA-Public Use
  Company Number: US-MYLANLABS-2013S1022904

PATIENT
  Sex: Male

DRUGS (1)
  1. CARBOPLATIN [Suspect]
     Indication: RETINOBLASTOMA
     Dosage: 2CC OF 10 MG/CC
     Route: 057

REACTIONS (2)
  - Periorbital disorder [Unknown]
  - Neoplasm recurrence [Unknown]
